FAERS Safety Report 13144101 (Version 1)
Quarter: 2017Q1

REPORT INFORMATION
  Report Type: Report from Study
  Country: US (occurrence: US)
  Receive Date: 20170124
  Receipt Date: 20170124
  Transmission Date: 20170428
  Serious: Yes (Other)
  Sender: FDA-Public Use
  Company Number: US-ALEXION PHARMACEUTICALS INC-A201700349

PATIENT
  Age: 57 Year
  Sex: Female
  Weight: 92 kg

DRUGS (1)
  1. SOLIRIS [Suspect]
     Active Substance: ECULIZUMAB
     Indication: HAEMOLYTIC URAEMIC SYNDROME
     Dosage: 1200 MG, Q2W
     Route: 042
     Dates: start: 20150616

REACTIONS (8)
  - Hypertension [Unknown]
  - Cough [Unknown]
  - Headache [Unknown]
  - Myocardial infarction [Unknown]
  - Haematoma [Unknown]
  - Epistaxis [Unknown]
  - Increased tendency to bruise [Unknown]
  - Vision blurred [Unknown]

NARRATIVE: CASE EVENT DATE: 20150625
